FAERS Safety Report 5705718-6 (Version None)
Quarter: 2008Q2

REPORT INFORMATION
  Report Type: 
  Country: None (occurrence: None)
  Receive Date: 20080415
  Receipt Date: 20080404
  Transmission Date: 20081010
  Serious: Yes (Death)
  Sender: FDA-Public Use
  Company Number: A0722669A

PATIENT
  Age: 44 Year
  Sex: Male

DRUGS (2)
  1. SERETIDE [Suspect]
     Indication: ASTHMA
     Route: 055
     Dates: start: 20071001, end: 20080320
  2. CAPTOPRIL [Concomitant]
     Dosage: 25MG TWICE PER DAY

REACTIONS (1)
  - CARDIAC FAILURE CONGESTIVE [None]
